FAERS Safety Report 9704906 (Version 1)
Quarter: 2013Q4

REPORT INFORMATION
  Report Type: Not Available
  Country: US (occurrence: US)
  Receive Date: 20131122
  Receipt Date: 20131122
  Transmission Date: 20140711
  Serious: No
  Sender: FDA-Public Use
  Company Number: US-AMARIN PHARMA, INC.-2013AMR000061

PATIENT
  Sex: Female

DRUGS (1)
  1. VASCEPA [Suspect]
     Indication: BLOOD TRIGLYCERIDES
     Route: 065
     Dates: start: 201305

REACTIONS (1)
  - Blood triglycerides increased [Unknown]
